FAERS Safety Report 16715978 (Version 1)
Quarter: 2019Q3

REPORT INFORMATION
  Report Type: Spontaneous
  Country: US (occurrence: US)
  Receive Date: 20190819
  Receipt Date: 20190819
  Transmission Date: 20191005
  Serious: Yes (Hospitalization)
  Sender: FDA-Public Use
  Company Number: US-NORTHSTAR HEALTHCARE HOLDINGS-US-2019NSR000134

PATIENT
  Age: 58 Year
  Sex: Female

DRUGS (2)
  1. BACLOFEN. [Suspect]
     Active Substance: BACLOFEN
     Indication: FACIAL PAIN
     Dosage: 2.5 MG, BID
     Route: 065
  2. CARBAMAZEPINE. [Suspect]
     Active Substance: CARBAMAZEPINE
     Indication: FACIAL PAIN
     Dosage: 200 MG, BID
     Route: 065

REACTIONS (4)
  - Rash morbilliform [Recovered/Resolved]
  - Accidental overdose [Recovered/Resolved]
  - Neurotoxicity [Recovered/Resolved]
  - Toxicity to various agents [Recovered/Resolved]
